FAERS Safety Report 13657623 (Version 2)
Quarter: 2018Q1

REPORT INFORMATION
  Report Type: Report from Study
  Country: US (occurrence: US)
  Receive Date: 20170615
  Receipt Date: 20180322
  Transmission Date: 20180508
  Serious: Yes (Hospitalization)
  Sender: FDA-Public Use
  Company Number: US-ACTELION-A-NJ2017-155169

PATIENT
  Age: 62 Year
  Sex: Female

DRUGS (16)
  1. TEKTURNA [Concomitant]
     Active Substance: ALISKIREN HEMIFUMARATE
  2. ADCIRCA [Concomitant]
     Active Substance: TADALAFIL
  3. MAGNESIUM [Concomitant]
     Active Substance: MAGNESIUM
  4. FISH OIL [Concomitant]
     Active Substance: FISH OIL
  5. UPTRAVI [Suspect]
     Active Substance: SELEXIPAG
     Indication: PULMONARY ARTERIAL HYPERTENSION
     Dosage: 1400 MCG, BID
     Route: 048
     Dates: start: 20160226
  6. OPSUMIT [Suspect]
     Active Substance: MACITENTAN
     Indication: PULMONARY ARTERIAL HYPERTENSION
     Dosage: 10 MG, QD
     Route: 048
     Dates: start: 20150611
  7. METHOTREXATE. [Concomitant]
     Active Substance: METHOTREXATE
  8. CELEBREX [Concomitant]
     Active Substance: CELECOXIB
  9. IMODIUM [Concomitant]
     Active Substance: LOPERAMIDE HYDROCHLORIDE
  10. ADVAIR HFA [Concomitant]
     Active Substance: FLUTICASONE PROPIONATE\SALMETEROL XINAFOATE
  11. UPTRAVI [Suspect]
     Active Substance: SELEXIPAG
     Dosage: 2000 MCG, BID
     Route: 048
  12. TYLENOL [Concomitant]
     Active Substance: ACETAMINOPHEN
  13. MYCOPHENOLATE [Concomitant]
     Active Substance: MYCOPHENOLIC ACID
  14. UPTRAVI [Suspect]
     Active Substance: SELEXIPAG
     Dosage: 1200 MCG, BID
     Route: 048
     Dates: start: 20170514
  15. AMLODIPINE [Concomitant]
     Active Substance: AMLODIPINE BESYLATE
  16. METOPROLOL. [Concomitant]
     Active Substance: METOPROLOL

REACTIONS (7)
  - Oedema peripheral [Unknown]
  - Headache [Unknown]
  - Clostridium difficile infection [Recovered/Resolved]
  - Fatigue [Unknown]
  - Diarrhoea [Unknown]
  - Flushing [Unknown]
  - Pain in jaw [Unknown]

NARRATIVE: CASE EVENT DATE: 20170514
